FAERS Safety Report 4281964-6 (Version None)
Quarter: 2004Q1

REPORT INFORMATION
  Report Type: 
  Country: None (occurrence: None)
  Receive Date: 20040127
  Receipt Date: 20040122
  Transmission Date: 20041129
  Serious: Yes (Hospitalization, Disabling)
  Sender: FDA-Public Use
  Company Number: HQ5414820NOV2002

PATIENT
  Sex: Female

DRUGS (3)
  1. DIMETAPP [Suspect]
     Indication: NASOPHARYNGITIS
     Dosage: ORAL
     Route: 048
     Dates: start: 20000401
  2. CONTAC [Suspect]
     Dosage: ORAL
     Route: 048
  3. TRIAMINIC SRT [Suspect]
     Indication: NASOPHARYNGITIS
     Dosage: ORAL
     Route: 048
     Dates: start: 20000401

REACTIONS (1)
  - HAEMORRHAGIC STROKE [None]
